FAERS Safety Report 13632626 (Version 1)
Quarter: 2017Q2

REPORT INFORMATION
  Report Type: Spontaneous
  Country: US (occurrence: US)
  Receive Date: 20170531
  Receipt Date: 20170531
  Transmission Date: 20170830
  Serious: No
  Sender: FDA-Public Use
  Company Number: US-ASTELLAS-1469818

PATIENT
  Sex: Male

DRUGS (6)
  1. SUCRALFATE. [Concomitant]
     Active Substance: SUCRALFATE
  2. TARCEVA [Suspect]
     Active Substance: ERLOTINIB HYDROCHLORIDE
     Indication: PANCREATIC CARCINOMA
     Route: 048
     Dates: start: 20140723, end: 20141002
  3. FLUVIRIN (UNITED STATES) [Concomitant]
  4. CEFUROXIME. [Concomitant]
     Active Substance: CEFUROXIME
  5. OXYBUTYNIN [Concomitant]
     Active Substance: OXYBUTYNIN
  6. TRIAMTERENE. [Concomitant]
     Active Substance: TRIAMTERENE

REACTIONS (1)
  - Drug ineffective [Unknown]
